FAERS Safety Report 6483702-5 (Version None)
Quarter: 2009Q4

REPORT INFORMATION
  Report Type: 
  Country: None (occurrence: None)
  Receive Date: 20091209
  Receipt Date: 20090504
  Transmission Date: 20100525
  Serious: No
  Sender: FDA-Public Use
  Company Number: US-AMGEN-KDL345393

PATIENT
  Sex: Male

DRUGS (7)
  1. ENBREL [Suspect]
     Indication: ANKYLOSING SPONDYLITIS
  2. LIPITOR [Concomitant]
  3. OLOPATADINE HYDROCHLORIDE [Concomitant]
  4. UNSPECIFIED VITAMINS [Concomitant]
  5. FISH OIL [Concomitant]
  6. ZYRTEC [Concomitant]
  7. CELEBREX [Concomitant]

REACTIONS (2)
  - ARTHRALGIA [None]
  - PAIN IN EXTREMITY [None]
